FAERS Safety Report 15095227 (Version 1)
Quarter: 2018Q3

REPORT INFORMATION
  Report Type: Spontaneous
  Country: US (occurrence: US)
  Receive Date: 20180702
  Receipt Date: 20180702
  Transmission Date: 20181010
  Serious: Yes (Hospitalization)
  Sender: FDA-Public Use
  Company Number: US-BEH-2018092227

PATIENT
  Age: 59 Year
  Sex: Female
  Weight: 69.39 kg

DRUGS (26)
  1. ACETAMINOPHEN. [Concomitant]
     Active Substance: ACETAMINOPHEN
  2. EPINEPHRINE. [Concomitant]
     Active Substance: EPINEPHRINE
  3. ASMANEX [Concomitant]
     Active Substance: MOMETASONE FUROATE
  4. RANITIDINE. [Concomitant]
     Active Substance: RANITIDINE
  5. CLONAZEPAM. [Concomitant]
     Active Substance: CLONAZEPAM
  6. OMEPRAZOLE SODIUM [Concomitant]
     Active Substance: OMEPRAZOLE SODIUM
  7. LYRICA [Concomitant]
     Active Substance: PREGABALIN
  8. BACTRIM DS [Concomitant]
     Active Substance: SULFAMETHOXAZOLE\TRIMETHOPRIM
  9. CYCLOBENZAPRINE. [Concomitant]
     Active Substance: CYCLOBENZAPRINE
  10. DRAMAMINE [Concomitant]
     Active Substance: DIMENHYDRINATE
  11. IPRATROPIUM [Concomitant]
     Active Substance: IPRATROPIUM
  12. ALBUTEROL                          /00139501/ [Concomitant]
     Active Substance: ALBUTEROL
  13. HIZENTRA [Suspect]
     Active Substance: HUMAN IMMUNOGLOBULIN G
     Dosage: UNK
     Route: 058
  14. PREDNISONE. [Concomitant]
     Active Substance: PREDNISONE
  15. DIPHENHYDRAMINE. [Concomitant]
     Active Substance: DIPHENHYDRAMINE
  16. VITAMIN B COMPLEX [Concomitant]
     Active Substance: CYANOCOBALAMIN\DEXPANTHENOL\NIACINAMIDE\PYRIDOXINE HYDROCHLORIDE\RIBOFLAVIN 5^-PHOSPHATE SODIUM\THIAMINE HYDROCHLORIDE\VITAMIN B COMPLEX
  17. HIZENTRA [Suspect]
     Active Substance: HUMAN IMMUNOGLOBULIN G
     Indication: IMMUNODEFICIENCY COMMON VARIABLE
     Dosage: UNK
     Route: 058
     Dates: start: 20160217
  18. LEVOFLOXACIN. [Concomitant]
     Active Substance: LEVOFLOXACIN
  19. OLODATEROL [Concomitant]
     Active Substance: OLODATEROL
  20. IRON [Concomitant]
     Active Substance: IRON
  21. ZYRTEC [Concomitant]
     Active Substance: CETIRIZINE HYDROCHLORIDE
  22. TRAMADOL. [Concomitant]
     Active Substance: TRAMADOL
  23. HYOSCYAMINE. [Concomitant]
     Active Substance: HYOSCYAMINE
  24. SINGULAIR [Concomitant]
     Active Substance: MONTELUKAST SODIUM
  25. DALIRESP [Concomitant]
     Active Substance: ROFLUMILAST
  26. SPIRIVA [Concomitant]
     Active Substance: TIOTROPIUM BROMIDE MONOHYDRATE

REACTIONS (1)
  - Chronic obstructive pulmonary disease [Recovered/Resolved]

NARRATIVE: CASE EVENT DATE: 20180529
